FAERS Safety Report 7772071 (Version 2)
Quarter: 2014Q1

REPORT INFORMATION
  Report Type: Spontaneous
  Country: US (occurrence: US)
  Receive Date: 20110124
  Receipt Date: 20140106
  Transmission Date: 20141002
  Serious: Yes (Life-Threatening)
  Sender: FDA-Public Use
  Company Number: US-ASTRAZENECA-2011SE03255

PATIENT
  Age: 50 Year
  Sex: Male

DRUGS (3)
  1. LISINOPRIL [Suspect]
     Indication: HYPERTENSION
     Dosage: 1000 MG
     Route: 048
  2. AMLODIPINE [Suspect]
     Dosage: 500 MG
     Route: 048
  3. HCTZ [Suspect]
     Dosage: 625 MG
     Route: 048

REACTIONS (7)
  - Intentional overdose [Recovered/Resolved]
  - Suicide attempt [Recovered/Resolved]
  - Respiratory failure [Recovered/Resolved]
  - Sepsis [Recovered/Resolved]
  - Cardiac output decreased [Recovered/Resolved]
  - Shock [Recovered/Resolved]
  - Renal failure acute [Recovered/Resolved]
